FAERS Safety Report 6987234-7 (Version None)
Quarter: 2010Q3

REPORT INFORMATION
  Report Type: 
  Country: None (occurrence: None)
  Receive Date: 20100916
  Receipt Date: 20100902
  Transmission Date: 20110219
  Serious: Yes (Other)
  Sender: FDA-Public Use
  Company Number: TW-RANBAXY-2010RR-38107

PATIENT
  Age: 12 Year
  Sex: Male

DRUGS (3)
  1. CARBIDOPA AND LEVODOPA [Suspect]
     Indication: PARKINSONISM
  2. PRAMIPEXOLE [Suspect]
     Indication: PARKINSONISM
  3. APOMORPHINE [Suspect]

REACTIONS (3)
  - ANGER [None]
  - DYSKINESIA [None]
  - HYPERSEXUALITY [None]
